FAERS Safety Report 21046624 (Version 1)
Quarter: 2022Q3

REPORT INFORMATION
  Report Type: Spontaneous
  Country: PT (occurrence: PT)
  Receive Date: 20220706
  Receipt Date: 20220706
  Transmission Date: 20221027
  Serious: Yes (Life-Threatening, Hospitalization, Other)
  Sender: FDA-Public Use
  Company Number: PT-MLMSERVICE-20220623-3636232-1

PATIENT
  Age: 10 Year
  Sex: Female
  Weight: 26 kg

DRUGS (4)
  1. METHOTREXATE [Suspect]
     Active Substance: METHOTREXATE
     Indication: Acute lymphocytic leukaemia
  2. CYTARABINE [Suspect]
     Active Substance: CYTARABINE
     Indication: Acute lymphocytic leukaemia
  3. HYDROCORTISONE [Suspect]
     Active Substance: HYDROCORTISONE
     Indication: Acute lymphocytic leukaemia
  4. PEG/L-ASPARAGINASE [Suspect]
     Active Substance: PEGASPARGASE
     Indication: Acute lymphocytic leukaemia

REACTIONS (6)
  - Myelosuppression [Recovering/Resolving]
  - Coagulation test abnormal [Recovering/Resolving]
  - Partial seizures [Recovering/Resolving]
  - Superior sagittal sinus thrombosis [Recovering/Resolving]
  - Cerebral haemorrhage [Recovering/Resolving]
  - Intracranial hypotension [Recovering/Resolving]
